FAERS Safety Report 21547000 (Version 2)
Quarter: 2022Q4

REPORT INFORMATION
  Report Type: Spontaneous
  Country: ES (occurrence: ES)
  Receive Date: 20221103
  Receipt Date: 20221114
  Transmission Date: 20230113
  Serious: Yes (Other)
  Sender: FDA-Public Use
  Company Number: None

PATIENT
  Age: 31 Year
  Sex: Female
  Weight: 79 kg

DRUGS (3)
  1. BRIMONIDINE TARTRATE [Suspect]
     Active Substance: BRIMONIDINE TARTRATE
     Indication: Product used for unknown indication
     Route: 065
     Dates: start: 20221017, end: 20221017
  2. BRIMONIDINE TARTRATE [Suspect]
     Active Substance: BRIMONIDINE TARTRATE
  3. DROSURE [Concomitant]
     Indication: Polycystic ovaries
     Dosage: ONE DAILY FOR 21 DAYS AND 7 OFF.
     Route: 065

REACTIONS (1)
  - Cluster headache [Recovering/Resolving]

NARRATIVE: CASE EVENT DATE: 20221017
